FAERS Safety Report 11598491 (Version 2)
Quarter: 2015Q4

REPORT INFORMATION
  Report Type: Report from Study
  Country: US (occurrence: US)
  Receive Date: 20151006
  Receipt Date: 20151123
  Transmission Date: 20160304
  Serious: Yes (Hospitalization)
  Sender: FDA-Public Use
  Company Number: US-SEATTLE GENETICS-2015SGN01553

PATIENT

DRUGS (14)
  1. PRAVASTATIN [Concomitant]
     Active Substance: PRAVASTATIN\PRAVASTATIN SODIUM
  2. PRIMIDONE. [Concomitant]
     Active Substance: PRIMIDONE
  3. PROCHLORPERAZINE. [Concomitant]
     Active Substance: PROCHLORPERAZINE
  4. PROPRANOLOL [Concomitant]
     Active Substance: PROPRANOLOL\PROPRANOLOL HYDROCHLORIDE
  5. ASPIRIN                            /00002701/ [Concomitant]
     Active Substance: ASPIRIN
  6. DACARBAZINE. [Suspect]
     Active Substance: DACARBAZINE
     Indication: HODGKIN^S DISEASE
     Dosage: 375 MG/M2, QCYCLE
     Route: 042
     Dates: start: 20150102, end: 20150604
  7. VITAMIN D3 [Concomitant]
     Active Substance: CHOLECALCIFEROL
  8. VITAMIN A                          /00056001/ [Concomitant]
     Active Substance: RETINOL
  9. BRENTUXIMAB VEDOTIN [Suspect]
     Active Substance: BRENTUXIMAB VEDOTIN
     Indication: HODGKIN^S DISEASE
     Dosage: 1.8 MG/KG, QCYCLE
     Route: 042
     Dates: start: 20141120, end: 20150910
  10. DOXORUBICIN [Suspect]
     Active Substance: DOXORUBICIN
     Indication: HODGKIN^S DISEASE
     Dosage: 25 MG/M2, QCYCLE
     Route: 042
     Dates: start: 20150102, end: 20150604
  11. GABAPENTIN. [Concomitant]
     Active Substance: GABAPENTIN
  12. ALEVE [Concomitant]
     Active Substance: NAPROXEN SODIUM
  13. SERTRALINE [Concomitant]
     Active Substance: SERTRALINE HYDROCHLORIDE
  14. VINBLASTINE [Suspect]
     Active Substance: VINBLASTINE
     Indication: HODGKIN^S DISEASE
     Dosage: 6 MG/M2, QCYCLE
     Route: 042
     Dates: start: 20150102, end: 20150604

REACTIONS (4)
  - Gastric haemorrhage [Recovered/Resolved]
  - Back pain [None]
  - Gastritis erosive [None]
  - Pain in extremity [None]

NARRATIVE: CASE EVENT DATE: 201509
